FAERS Safety Report 4381834-9 (Version None)
Quarter: 2004Q2

REPORT INFORMATION
  Report Type: 
  Country: None (occurrence: None)
  Receive Date: 20040603
  Receipt Date: 20030815
  Transmission Date: 20050107
  Serious: Yes (Other)
  Sender: FDA-Public Use
  Company Number: 200316500US

PATIENT
  Age: 79 Year
  Sex: Male
  Weight: 97 kg

DRUGS (3)
  1. LOVENOX [Suspect]
     Indication: CORONARY ARTERY DISEASE
     Dosage: 97 MG Q12H  SC
     Route: 058
     Dates: start: 20030505, end: 20030508
  2. INTEGRILIN [Suspect]
     Indication: CORONARY ARTERY DISEASE
     Dosage: 80 UG/KG ONCE
     Dates: start: 20030505, end: 20030505
  3. INTEGRILIN [Suspect]
     Indication: CORONARY ARTERY DISEASE
     Dates: start: 20030506, end: 20030507

REACTIONS (5)
  - ECCHYMOSIS [None]
  - EPISTAXIS [None]
  - HAEMATURIA [None]
  - HAEMOGLOBIN DECREASED [None]
  - HAEMORRHAGE [None]
